FAERS Safety Report 8495101 (Version 8)
Quarter: 2014Q2

REPORT INFORMATION
  Report Type: Spontaneous
  Country: JP (occurrence: JP)
  Receive Date: 20120405
  Receipt Date: 20140619
  Transmission Date: 20141212
  Serious: Yes (Other)
  Sender: FDA-Public Use
  Company Number: PHHY2012JP026920

PATIENT
  Age: 26 Year
  Sex: Female
  Weight: 69 kg

DRUGS (15)
  1. NEORAL [Suspect]
     Indication: NEPHROTIC SYNDROME
     Dosage: 150 MG DAILY
     Route: 048
     Dates: start: 20100824, end: 20101028
  2. NEORAL [Suspect]
     Dosage: 125 MG, DAILY
     Route: 048
     Dates: start: 20101029, end: 20101118
  3. NEORAL [Suspect]
     Dosage: 100 MG DAILY
     Route: 048
     Dates: start: 20101119, end: 20110113
  4. NEORAL [Suspect]
     Dosage: 75 MG, DAILY
     Route: 048
     Dates: start: 20110114, end: 20110505
  5. NEORAL [Suspect]
     Dosage: 50 MG, UNK
     Dates: start: 20110506, end: 20110519
  6. NEORAL [Suspect]
     Dosage: 25 MG, UNK
     Dates: start: 20110520, end: 20110602
  7. PREDNISOLONE [Suspect]
     Indication: NEPHROTIC SYNDROME
     Dosage: 7.5 MG, UNK
     Route: 048
     Dates: start: 20100824, end: 20101014
  8. PREDNISOLONE [Suspect]
     Dosage: 20 MG, UNK
     Route: 048
     Dates: start: 20101015, end: 20101028
  9. PREDNISOLONE [Suspect]
     Dosage: 12.5 MG, UNK
     Route: 048
     Dates: start: 20101029, end: 20110203
  10. PREDNISOLONE [Suspect]
     Dosage: 20 MG, UNK
     Route: 048
     Dates: start: 20110204, end: 20110310
  11. PREDNISOLONE [Suspect]
     Dosage: 30 MG, UNK
     Route: 048
     Dates: start: 20110311, end: 20110324
  12. PREDNISOLONE [Suspect]
     Dosage: 20 MG, UNK
     Route: 048
     Dates: start: 20110325, end: 20110616
  13. OXYTOCIN [Suspect]
     Indication: LABOUR INDUCTION
     Route: 065
  14. MIZORIBINE [Suspect]
  15. CYCLOPHOSPHAMIDE [Suspect]

REACTIONS (8)
  - Foetal growth restriction [Unknown]
  - Pre-eclampsia [Recovered/Resolved]
  - Placental dysplasia [Unknown]
  - Uterine hypoplasia [Unknown]
  - Nephrotic syndrome [Unknown]
  - Oligohydramnios [Unknown]
  - Oedema [Unknown]
  - Exposure during pregnancy [Unknown]
